FAERS Safety Report 23571641 (Version 3)
Quarter: 2024Q1

REPORT INFORMATION
  Report Type: Spontaneous
  Country: IT (occurrence: IT)
  Receive Date: 20240227
  Receipt Date: 20240311
  Transmission Date: 20240409
  Serious: Yes (Hospitalization, Other)
  Sender: FDA-Public Use
  Company Number: None

PATIENT
  Age: 79 Year
  Sex: Female
  Weight: 77 kg

DRUGS (4)
  1. DARZALEX [Suspect]
     Active Substance: DARATUMUMAB
     Indication: Plasma cell myeloma refractory
     Dosage: 1800 MG SUBCUTANEOUSLY ACCORDING TO THE FREQUENCY FORESEEN BY RCP
     Route: 058
     Dates: start: 20230117
  2. DEXAMETHASONE [Suspect]
     Active Substance: DEXAMETHASONE
     Indication: Plasma cell myeloma refractory
     Dosage: 20 MG/SETTIMANA
     Route: 048
     Dates: start: 20230117
  3. REVLIMID [Suspect]
     Active Substance: LENALIDOMIDE
     Indication: Plasma cell myeloma refractory
     Dosage: THE PATIENT BEGINS THERAPY ON 01/17/2023 WITH REVLIMID 25 MG, REDUCED ON 03/15/2023 TO 15 MG FOLLOWI
     Route: 048
     Dates: start: 20230117, end: 20231102
  4. DEXAMETHASONE [Concomitant]
     Active Substance: DEXAMETHASONE
     Indication: Chemotherapy side effect prophylaxis
     Dosage: 20 MG/WEEK
     Route: 048
     Dates: start: 20230117

REACTIONS (3)
  - Neutropenia [Recovering/Resolving]
  - Pulmonary embolism [Recovering/Resolving]
  - Oedema peripheral [Recovering/Resolving]

NARRATIVE: CASE EVENT DATE: 20230315
